FAERS Safety Report 4979274-4 (Version None)
Quarter: 2006Q2

REPORT INFORMATION
  Report Type: 
  Country: None (occurrence: None)
  Receive Date: 20060421
  Receipt Date: 20050718
  Transmission Date: 20061013
  Serious: Yes (Hospitalization, Disabling)
  Sender: FDA-Public Use
  Company Number: US-MERCK-0507USA02884

PATIENT
  Age: 70 Year
  Sex: Female
  Weight: 70 kg

DRUGS (4)
  1. VIOXX [Suspect]
     Indication: ARTHRITIS
     Route: 048
     Dates: start: 19990101, end: 20040701
  2. ASPIRIN [Concomitant]
     Route: 065
  3. AGGRENOX [Concomitant]
     Route: 065
  4. DITROPAN XL [Concomitant]
     Route: 065

REACTIONS (7)
  - CORONARY ARTERY DISEASE [None]
  - DYSPNOEA [None]
  - HYPERTENSION [None]
  - INJURY [None]
  - MYOCARDIAL INFARCTION [None]
  - TRANSIENT ISCHAEMIC ATTACK [None]
  - VERTIGO [None]
